FAERS Safety Report 6734323-8 (Version None)
Quarter: 2010Q2

REPORT INFORMATION
  Report Type: 
  Country: None (occurrence: None)
  Receive Date: 20100520
  Receipt Date: 20100510
  Transmission Date: 20101027
  Serious: Yes (Other)
  Sender: FDA-Public Use
  Company Number: US-BAXTER-2010BH009573

PATIENT
  Age: 53 Year
  Sex: Male
  Weight: 86 kg

DRUGS (1)
  1. DIANEAL [Suspect]
     Indication: PERITONEAL DIALYSIS
     Route: 033
     Dates: start: 19970701

REACTIONS (5)
  - ABDOMINAL DISCOMFORT [None]
  - FLUID RETENTION [None]
  - OEDEMA [None]
  - PROCEDURAL COMPLICATION [None]
  - ULTRAFILTRATION FAILURE [None]
